FAERS Safety Report 15173302 (Version 1)
Quarter: 2018Q3

REPORT INFORMATION
  Report Type: Spontaneous
  Country: US (occurrence: US)
  Receive Date: 20180720
  Receipt Date: 20180720
  Transmission Date: 20181010
  Serious: Yes (Other)
  Sender: FDA-Public Use
  Company Number: US-BAYER-2018-131274

PATIENT
  Age: 62 Year
  Sex: Female
  Weight: 94.97 kg

DRUGS (2)
  1. RID 1?2?3 SYSTEM [Suspect]
     Active Substance: PIPERONYL BUTOXIDE\PYRETHRUM EXTRACT
     Indication: LICE INFESTATION
     Route: 065
     Dates: start: 201807
  2. MONISTAT [Concomitant]
     Active Substance: MICONAZOLE NITRATE
     Route: 067

REACTIONS (7)
  - Haematochezia [Unknown]
  - Hemianaesthesia [Unknown]
  - Alopecia [Unknown]
  - Abdominal discomfort [Unknown]
  - Pain [Unknown]
  - Feeling abnormal [Unknown]
  - Frequent bowel movements [Unknown]

NARRATIVE: CASE EVENT DATE: 20180710
